FAERS Safety Report 5916541-1 (Version None)
Quarter: 2008Q4

REPORT INFORMATION
  Report Type: 
  Country: None (occurrence: None)
  Receive Date: 20081013
  Receipt Date: 20081002
  Transmission Date: 20090506
  Serious: Yes (Hospitalization)
  Sender: FDA-Public Use
  Company Number: B0539991A

PATIENT
  Age: 81 Year
  Sex: Male

DRUGS (4)
  1. ARIXTRA [Suspect]
     Dosage: 2.5MG PER DAY
     Route: 058
     Dates: start: 20080622, end: 20080630
  2. BIPROFENID [Suspect]
     Indication: PAIN PROPHYLAXIS
     Dosage: 100MG TWICE PER DAY
     Route: 042
     Dates: start: 20080623, end: 20080625
  3. PROPACETAMOL [Concomitant]
     Indication: PAIN PROPHYLAXIS
     Route: 042
     Dates: start: 20080623, end: 20080625
  4. DOLIPRANE [Concomitant]
     Route: 065
     Dates: start: 20080625

REACTIONS (4)
  - HAEMATOMA [None]
  - INTENTIONAL DRUG MISUSE [None]
  - OPERATIVE HAEMORRHAGE [None]
  - PLATELET COUNT DECREASED [None]
